FAERS Safety Report 16697268 (Version 1)
Quarter: 2019Q3

REPORT INFORMATION
  Report Type: Spontaneous
  Country: KR (occurrence: KR)
  Receive Date: 20190813
  Receipt Date: 20190813
  Transmission Date: 20191004
  Serious: Yes (Death, Other)
  Sender: FDA-Public Use
  Company Number: KR-PFIZER INC-2019339992

PATIENT
  Sex: Female

DRUGS (4)
  1. PACLITAXEL. [Suspect]
     Active Substance: PACLITAXEL
     Indication: OVARIAN CANCER RECURRENT
     Dosage: UNK, CYCLIC (ON DAYS 1, 8, 15 AND 22 OF EACH 4-WEEK CYCLE)
     Route: 042
  2. BEVACIZUMAB. [Suspect]
     Active Substance: BEVACIZUMAB
     Indication: OVARIAN CANCER RECURRENT
     Dosage: CYCLIC (10M/KG EVERY 2 WEEKS OR 15MG/KG EVERY 3 WEEKS)
     Route: 042
  3. PEGYLATED LIPOSOMAL DOXORUBICIN [Suspect]
     Active Substance: DOXORUBICIN
     Indication: OVARIAN CANCER RECURRENT
     Dosage: UNK
     Route: 042
  4. TOPOTECAN [Suspect]
     Active Substance: TOPOTECAN HYDROCHLORIDE
     Indication: OVARIAN CANCER RECURRENT
     Dosage: UNK, CYCLIC (4MG/M2, DAYS 1, 8, 15 OF EACH 4-WEEK CYCLE, 1.25 MG/KG, DAYS 1-5 OF EACH 3 WEEK CYCLE)
     Route: 042

REACTIONS (17)
  - Abscess [Fatal]
  - Gastrointestinal perforation [Fatal]
  - Neutropenic infection [Fatal]
  - Thrombocytopenia [Fatal]
  - Anaemia [Fatal]
  - Proteinuria [Fatal]
  - Cerebrovascular accident [Fatal]
  - Impaired healing [Fatal]
  - Palmar-plantar erythrodysaesthesia syndrome [Fatal]
  - Fistula [Fatal]
  - Neutropenia [Fatal]
  - Cardiac failure congestive [Fatal]
  - Haemorrhage [Fatal]
  - Sepsis [Fatal]
  - Hypertension [Fatal]
  - Embolism [Fatal]
  - Intestinal perforation [Fatal]
